FAERS Safety Report 10284840 (Version 1)
Quarter: 2014Q3

REPORT INFORMATION
  Report Type: Spontaneous
  Country: NL (occurrence: NL)
  Receive Date: 20140708
  Receipt Date: 20140708
  Transmission Date: 20150326
  Serious: Yes (Other)
  Sender: FDA-Public Use
  Company Number: NL-GLAXOSMITHKLINE-B1011533A

PATIENT
  Age: 6 Year
  Sex: Male
  Weight: 21 kg

DRUGS (5)
  1. SALBUTAMOL [Suspect]
     Active Substance: ALBUTEROL
     Indication: ASTHMA
     Dosage: 100UG TWICE PER DAY
     Route: 055
     Dates: start: 20131117, end: 20140609
  2. ALVESCO [Suspect]
     Active Substance: CICLESONIDE
     Indication: ASTHMA
     Dosage: 160UG PER DAY
     Route: 055
     Dates: start: 20131116, end: 20140609
  3. AVAMYS [Suspect]
     Active Substance: FLUTICASONE FUROATE
     Indication: ASTHMA
     Dosage: 55UG PER DAY
     Route: 045
     Dates: start: 20131107, end: 20140609
  4. QVAR [Suspect]
     Active Substance: BECLOMETHASONE DIPROPIONATE
     Indication: ASTHMA
     Dosage: 100UG TWICE PER DAY
     Route: 055
     Dates: start: 20131116, end: 20140609
  5. FLUTICASONE PROPIONATE. [Suspect]
     Active Substance: FLUTICASONE PROPIONATE
     Indication: ASTHMA
     Dosage: 100UG PER DAY
     Route: 055
     Dates: start: 20131116, end: 20140609

REACTIONS (5)
  - Growth retardation [Recovered/Resolved]
  - Psychomotor hyperactivity [Recovered/Resolved]
  - Heart rate increased [Recovered/Resolved]
  - Poor quality sleep [Recovered/Resolved]
  - Anxiety [Recovered/Resolved]

NARRATIVE: CASE EVENT DATE: 20131201
